FAERS Safety Report 16947796 (Version 1)
Quarter: 2019Q4

REPORT INFORMATION
  Report Type: Spontaneous
  Country: DE (occurrence: DE)
  Receive Date: 20191022
  Receipt Date: 20191022
  Transmission Date: 20200122
  Serious: Yes (Hospitalization)
  Sender: FDA-Public Use
  Company Number: DE-ROCHE-2442784

PATIENT
  Age: 10 Month
  Sex: Female
  Weight: 8 kg

DRUGS (1)
  1. ROACTEMRA [Suspect]
     Active Substance: TOCILIZUMAB
     Indication: STILL^S DISEASE
     Dosage: 20MG/ML
     Route: 042

REACTIONS (3)
  - Tachycardia [Unknown]
  - Product storage error [Unknown]
  - Urticaria [Unknown]
